FAERS Safety Report 10665714 (Version 1)
Quarter: 2014Q4

REPORT INFORMATION
  Report Type: Spontaneous
  Country: US (occurrence: US)
  Receive Date: 20141219
  Receipt Date: 20141219
  Transmission Date: 20150529
  Serious: Yes (Other)
  Sender: FDA-Public Use
  Company Number: US-PURDUE-USA-2014-0119714

PATIENT
  Sex: Female

DRUGS (1)
  1. COLACE [Suspect]
     Active Substance: DOCUSATE SODIUM
     Indication: CONSTIPATION
     Dosage: 2 CAPSL, UNK
     Route: 048

REACTIONS (5)
  - Fall [Unknown]
  - Product physical issue [Unknown]
  - Dementia [Unknown]
  - Wrong technique in drug usage process [Unknown]
  - Dysphagia [Unknown]
